FAERS Safety Report 8158351-3 (Version None)
Quarter: 2012Q1

REPORT INFORMATION
  Report Type: 
  Country: None (occurrence: None)
  Receive Date: 20120217
  Receipt Date: 20120117
  Transmission Date: 20120608
  Serious: Yes (Hospitalization)
  Sender: FDA-Public Use
  Company Number: 001096435A

PATIENT
  Sex: Female

DRUGS (2)
  1. PROACTIV LOTION 2.5% BENZOYL PEROXIDE, GUTHY/RENDER [Suspect]
     Indication: ACNE
     Dosage: DAILY, TOPICAL
     Route: 061
  2. PROACTIV CLEANSER 2.5% BENZOYL PEROXIDE GUTHY/RENKER [Suspect]
     Indication: ACNE
     Dosage: DAILY, TOPICAL
     Route: 061

REACTIONS (5)
  - SWELLING FACE [None]
  - BURNING SENSATION [None]
  - EYE SWELLING [None]
  - ERYTHEMA [None]
  - MULTIPLE ALLERGIES [None]
